FAERS Safety Report 6067538-5 (Version None)
Quarter: 2009Q1

REPORT INFORMATION
  Report Type: 
  Country: None (occurrence: None)
  Receive Date: 20090205
  Receipt Date: 20090127
  Transmission Date: 20090719
  Serious: Yes (Hospitalization)
  Sender: FDA-Public Use
  Company Number: PHHO2009JP01586

PATIENT
  Sex: Male
  Weight: 63 kg

DRUGS (13)
  1. CERTICAN [Suspect]
     Indication: RENAL TRANSPLANT
     Dosage: 1.5 MG /DAILY
     Route: 048
  2. CERTICAN [Suspect]
     Dosage: 1MG /DAILY
     Route: 048
     Dates: start: 20080709
  3. NEORAL [Suspect]
     Indication: RENAL TRANSPLANT
     Dosage: 60MG/DAILY
     Route: 048
     Dates: start: 20080302
  4. NEORAL [Suspect]
     Dosage: 150 MG/DAILY
     Route: 048
  5. MEDROL [Suspect]
     Indication: RENAL TRANSPLANT
     Dosage: 4MG/DAILY
     Route: 048
     Dates: start: 20081112
  6. PARIET [Suspect]
     Indication: GASTRITIS PROPHYLAXIS
     Dosage: 10MG /DAILY
     Route: 048
     Dates: start: 20080301
  7. NORVASC [Suspect]
     Indication: HYPERTENSION
     Dosage: 10MG/DAILY
     Route: 048
     Dates: start: 20080121
  8. MAINTATE [Suspect]
     Indication: HYPERTENSION
     Dosage: 5MG/DAILY
     Dates: start: 20081121
  9. LIPITOR [Suspect]
     Indication: HYPERLIPIDAEMIA
     Dosage: 10MG /DAILY
     Route: 048
     Dates: start: 20090113
  10. LASIX [Suspect]
     Indication: PROPHYLAXIS
     Dosage: 20MG/DAILY
     Route: 048
     Dates: start: 20090113
  11. NEUER [Concomitant]
     Indication: GASTRITIS PROPHYLAXIS
     Dosage: UNK
  12. OLMETEC [Concomitant]
     Indication: HYPERTENSION
     Dosage: UNK
  13. ISODINE [Concomitant]
     Indication: INFECTION PROPHYLAXIS
     Dosage: UNK

REACTIONS (5)
  - ARTHRALGIA [None]
  - CHILLS [None]
  - INFLAMMATION [None]
  - PYREXIA [None]
  - TREMOR [None]
